FAERS Safety Report 9676446 (Version 1)
Quarter: 2013Q4

REPORT INFORMATION
  Report Type: Spontaneous
  Country: US (occurrence: US)
  Receive Date: 20131107
  Receipt Date: 20131107
  Transmission Date: 20140711
  Serious: Yes (Hospitalization, Other)
  Sender: FDA-Public Use
  Company Number: US-BAXTER-2013BAX043502

PATIENT
  Sex: Female
  Weight: 99.88 kg

DRUGS (3)
  1. GAMMAGARD S/D [Suspect]
     Indication: IMMUNODEFICIENCY COMMON VARIABLE
     Route: 058
  2. GAMMAGARD S/D [Suspect]
     Route: 042
     Dates: start: 1990
  3. LOVENOX [Concomitant]
     Indication: PROTEIN C DEFICIENCY
     Route: 058

REACTIONS (4)
  - Papillary thyroid cancer [Unknown]
  - Vocal cord paralysis [Unknown]
  - Weight decreased [Unknown]
  - Weight increased [Unknown]
